FAERS Safety Report 8025337-9 (Version None)
Quarter: 2012Q1

REPORT INFORMATION
  Report Type: 
  Country: None (occurrence: None)
  Receive Date: 20120105
  Receipt Date: 20111230
  Transmission Date: 20120608
  Serious: Yes (Hospitalization)
  Sender: FDA-Public Use
  Company Number: FR-PFIZER INC-2011295519

PATIENT
  Age: 51 Year
  Sex: Male

DRUGS (2)
  1. CLINDAMYCIN HCL [Suspect]
     Indication: ANTIBIOTIC THERAPY
     Dosage: UNK
     Route: 048
     Dates: start: 20110418, end: 20110422
  2. LEVOFLOXACIN [Suspect]
     Indication: ANTIBIOTIC THERAPY
     Dosage: UNK
     Route: 048
     Dates: start: 20110418, end: 20110422

REACTIONS (2)
  - TOXIC SKIN ERUPTION [None]
  - PYREXIA [None]
